FAERS Safety Report 15268370 (Version 1)
Quarter: 2018Q3

REPORT INFORMATION
  Report Type: Spontaneous
  Country: US (occurrence: US)
  Receive Date: 20180726
  Receipt Date: 20180726
  Transmission Date: 20181010
  Serious: Yes (Other)
  Sender: FDA-Public Use
  Company Number: None

PATIENT
  Age: 24 Year
  Sex: Female
  Weight: 105.75 kg

DRUGS (1)
  1. LEVOFLAXIN [Suspect]
     Active Substance: LEVOFLOXACIN
     Indication: SINUSITIS
     Route: 048
     Dates: start: 20180629, end: 20180702

REACTIONS (9)
  - Dyspnoea [None]
  - Heart rate increased [None]
  - Dizziness [None]
  - Panic attack [None]
  - Nausea [None]
  - Hypertension [None]
  - Anxiety [None]
  - Syncope [None]
  - Fatigue [None]

NARRATIVE: CASE EVENT DATE: 20180703
